FAERS Safety Report 5820716-X (Version None)
Quarter: 2008Q3

REPORT INFORMATION
  Report Type: 
  Country: None (occurrence: None)
  Receive Date: 20080724
  Receipt Date: 20080318
  Transmission Date: 20090109
  Serious: No
  Sender: FDA-Public Use
  Company Number: A0716211A

PATIENT
  Age: 49 Year
  Sex: Female

DRUGS (2)
  1. AVANDIA [Suspect]
     Dosage: 4MG PER DAY
     Route: 048
     Dates: start: 20060101, end: 20070101
  2. GLUCOVANCE [Concomitant]

REACTIONS (5)
  - CONSTIPATION [None]
  - DISTURBANCE IN ATTENTION [None]
  - DIZZINESS [None]
  - NAUSEA [None]
  - VISION BLURRED [None]
